FAERS Safety Report 6460001-9 (Version None)
Quarter: 2009Q4

REPORT INFORMATION
  Report Type: 
  Country: None (occurrence: None)
  Receive Date: 20091129
  Receipt Date: 20091117
  Transmission Date: 20100525
  Serious: Yes (Hospitalization, Other)
  Sender: FDA-Public Use
  Company Number: PHHY2009JP43610

PATIENT
  Sex: Male
  Weight: 36 kg

DRUGS (16)
  1. ZOMETA [Suspect]
     Indication: METASTASES TO BONE
     Dosage: 4MG EVERY FOUR WEEKS
     Route: 041
     Dates: start: 20060801, end: 20061024
  2. ZOMETA [Suspect]
     Dosage: 4MG EVERY FOUR WEEKS
     Route: 041
     Dates: start: 20070907, end: 20090707
  3. DUROTEP [Concomitant]
     Indication: CANCER PAIN
     Dosage: 3 DF, TID
     Route: 062
     Dates: start: 20070330
  4. FENTANYL-100 [Concomitant]
     Route: 048
  5. HARNAL [Concomitant]
     Indication: DYSURIA
     Dosage: 1 DF, UNK
     Route: 048
     Dates: start: 20020601
  6. ESTRACYT                                /SCH/ [Concomitant]
     Indication: PROSTATE CANCER
     Dosage: 2 DF, UNK
     Route: 048
     Dates: start: 20061024, end: 20091009
  7. RINDERON [Concomitant]
     Indication: PROSTATE CANCER
     Dosage: 3 DF, UNK
     Route: 048
     Dates: start: 20070302
  8. BLOPRESS [Concomitant]
     Indication: PROSTATE CANCER
     Dosage: 1 DF, UNK
     Route: 048
     Dates: start: 20051018, end: 20090903
  9. JUZENTAIHOTO [Concomitant]
     Indication: PROSTATE CANCER
     Dosage: 7.5 MG, UNK
     Route: 048
     Dates: start: 20090625
  10. MAGNESIUM OXIDE [Concomitant]
     Indication: CONSTIPATION
     Dosage: 3 G, UNK
     Route: 048
     Dates: start: 20060301
  11. MYSLEE [Concomitant]
     Indication: INSOMNIA
     Dosage: 1 DF, UNK
     Route: 048
     Dates: start: 20060301
  12. MORPHINE HYDROCHLORIDE [Concomitant]
     Indication: CANCER PAIN
     Dosage: 4 DF, UNK
     Route: 048
     Dates: start: 20070301
  13. GASTROM [Concomitant]
     Dosage: 3 G, UNK
     Route: 048
     Dates: start: 20070501
  14. LEUPLIN [Concomitant]
     Dosage: 3.75 MG, UNK
     Route: 058
     Dates: start: 20020701, end: 20051213
  15. PURSENNID                               /SCH/ [Concomitant]
     Dosage: 3 DF, UNK
     Route: 048
     Dates: start: 20080401
  16. ZOLADEX [Concomitant]
     Dosage: 10.8 MG, UNK
     Route: 058
     Dates: start: 20060117

REACTIONS (12)
  - ANAEMIA [None]
  - BONE DISORDER [None]
  - GENERAL PHYSICAL HEALTH DETERIORATION [None]
  - HEPATIC FUNCTION ABNORMAL [None]
  - MALAISE [None]
  - OSTEOMYELITIS [None]
  - OSTEONECROSIS [None]
  - PAIN [None]
  - PURULENT DISCHARGE [None]
  - TOOTH EXTRACTION [None]
  - TOOTH LOSS [None]
  - TOOTHACHE [None]
